FAERS Safety Report 21633799 (Version 1)
Quarter: 2022Q4

REPORT INFORMATION
  Report Type: Spontaneous
  Country: US (occurrence: US)
  Receive Date: 20221123
  Receipt Date: 20221123
  Transmission Date: 20230113
  Serious: No
  Sender: FDA-Public Use
  Company Number: US-SA-SAC20221121000196

PATIENT
  Age: 68 Year
  Sex: Female

DRUGS (20)
  1. REZUROCK [Suspect]
     Active Substance: BELUMOSUDIL
     Indication: Graft versus host disease
     Dosage: 200 MG, TOTAL
     Route: 048
     Dates: start: 20220709, end: 20221115
  2. TACROLIMUS [Concomitant]
     Active Substance: TACROLIMUS
  3. URSODIOL [Concomitant]
     Active Substance: URSODIOL
  4. ACYCLOVIR [Concomitant]
     Active Substance: ACYCLOVIR
  5. ADVAIR HFA [Concomitant]
     Active Substance: FLUTICASONE PROPIONATE\SALMETEROL XINAFOATE
  6. AZITHROMYCIN [Concomitant]
     Active Substance: AZITHROMYCIN
     Dosage: M, W AND F
  7. FERROUS GLUCONATE [Concomitant]
     Active Substance: FERROUS GLUCONATE
  8. MELATONIN [Concomitant]
     Active Substance: MELATONIN
     Dosage: QHS
  9. HYDROXYZINE [Concomitant]
     Active Substance: HYDROXYZINE HYDROCHLORIDE
     Dosage: QHS
  10. AMBIEN CR [Concomitant]
     Active Substance: ZOLPIDEM TARTRATE
  11. TRIAMCINOLONE [Concomitant]
     Active Substance: TRIAMCINOLONE
  12. COLACE [Concomitant]
     Active Substance: DOCUSATE SODIUM
  13. RESTASIS [Concomitant]
     Active Substance: CYCLOSPORINE
  14. CALCIUM [Concomitant]
     Active Substance: CALCIUM
  15. VFEND [Concomitant]
     Active Substance: VORICONAZOLE
  16. CEFIXIME [Concomitant]
     Active Substance: CEFIXIME
  17. SINGULAIR [Concomitant]
     Active Substance: MONTELUKAST SODIUM
  18. VITAMIN D2 [Concomitant]
     Active Substance: ERGOCALCIFEROL
     Dosage: Q1 WEEK
  19. MAGNESIUM [Concomitant]
     Active Substance: MAGNESIUM
  20. CETIRIZINE [Concomitant]
     Active Substance: CETIRIZINE HYDROCHLORIDE

REACTIONS (9)
  - Muscle spasms [Unknown]
  - Dry mouth [Unknown]
  - Dental caries [Unknown]
  - Skin atrophy [Unknown]
  - Oral pain [Unknown]
  - Lip pain [Unknown]
  - Constipation [Unknown]
  - Nausea [Unknown]
  - Rash [Unknown]
